FAERS Safety Report 7716920-6 (Version None)
Quarter: 2011Q3

REPORT INFORMATION
  Report Type: 
  Country: None (occurrence: None)
  Receive Date: 20110829
  Receipt Date: 20110818
  Transmission Date: 20111222
  Serious: Yes (Hospitalization)
  Sender: FDA-Public Use
  Company Number: GB-GENENTECH-323408

PATIENT
  Sex: Female
  Weight: 80.4 kg

DRUGS (9)
  1. ACETAMINOPHEN [Concomitant]
     Indication: BACK PAIN
     Dosage: 1 G, UNK
     Route: 048
     Dates: start: 20110514
  2. TRAMADOL HCL [Concomitant]
     Indication: BACK PAIN
     Dosage: 50 MG, UNK
     Route: 048
     Dates: start: 20110518
  3. VINCRISTINE [Suspect]
     Indication: B-CELL LYMPHOMA
     Dosage: 2 MG, QAM
     Route: 042
     Dates: start: 20110613, end: 20110613
  4. RITUXIMAB [Suspect]
     Indication: B-CELL LYMPHOMA
     Dosage: 700 MG, QAM
     Route: 042
     Dates: start: 20110613, end: 20110613
  5. CYCLOPHOSPHAMIDE [Suspect]
     Indication: B-CELL LYMPHOMA
     Dosage: 1400 MG, QAM
     Route: 042
     Dates: start: 20110613, end: 20110613
  6. GABAPENTIN [Concomitant]
     Indication: BACK PAIN
     Dosage: 300 MG, TID
     Route: 048
     Dates: start: 20110512
  7. COZAAR [Concomitant]
     Indication: URINARY TRACT DISORDER
     Dosage: 100 MG, UNK
     Route: 048
     Dates: start: 20110426
  8. AMITRIPTYLINE HCL [Concomitant]
     Indication: ANXIETY
     Dosage: 20 MG, UNK
     Route: 048
     Dates: start: 20110509
  9. PREDNISOLONE [Suspect]
     Indication: B-CELL LYMPHOMA
     Dosage: 75 MG, QAM
     Route: 048
     Dates: start: 20110613, end: 20110617

REACTIONS (3)
  - MALAISE [None]
  - FATIGUE [None]
  - OROPHARYNGEAL PAIN [None]
